FAERS Safety Report 7841767 (Version 14)
Quarter: 2014Q2

REPORT INFORMATION
  Report Type: Report from Study
  Country: CA (occurrence: CA)
  Receive Date: 20110304
  Receipt Date: 20140530
  Transmission Date: 20141212
  Serious: Yes (Death, Hospitalization, Other)
  Sender: FDA-Public Use
  Company Number: PHHY2011CA14591

PATIENT
  Age: 55 Year
  Sex: Male
  Weight: 113.38 kg

DRUGS (8)
  1. AFINITOR [Suspect]
     Indication: ECTOPIC ACTH SYNDROME
     Dosage: 10 MG, QD
     Route: 048
     Dates: start: 20110501
  2. AFINITOR [Suspect]
     Indication: OFF LABEL USE
  3. SANDOSTATIN LAR [Suspect]
     Indication: ECTOPIC ACTH SYNDROME
     Dosage: 60 MG, EVERY 2 WEEKS
     Route: 030
     Dates: start: 20101130
  4. SANDOSTATIN LAR [Suspect]
     Indication: OFF LABEL USE
     Dosage: 30 MG, EVERY 2 WEEKS
     Route: 030
  5. SANDOSTATIN LAR [Suspect]
     Dosage: 60 MG, EVERY 4 WEEKS
     Route: 030
     Dates: end: 20140502
  6. SUTENT [Suspect]
     Dosage: UNK UKN, UNK
  7. SOMATULINE//LANREOTIDE [Suspect]
     Dosage: 20 MG, QMO
  8. METOPROLOL [Concomitant]
     Dosage: UNK UKN, UNK

REACTIONS (44)
  - Death [Fatal]
  - Psychotic disorder [Unknown]
  - Thinking abnormal [Unknown]
  - Abnormal dreams [Unknown]
  - Pulmonary thrombosis [Unknown]
  - Dyspnoea [Unknown]
  - Pulmonary mass [Unknown]
  - Adrenocortical insufficiency acute [Unknown]
  - Neoplasm [Unknown]
  - Lung neoplasm [Unknown]
  - Pleural disorder [Unknown]
  - Pleural effusion [Unknown]
  - Weight increased [Unknown]
  - Swelling [Recovering/Resolving]
  - Blood cortisol abnormal [Unknown]
  - Hormone level abnormal [Unknown]
  - Injection site haemorrhage [Unknown]
  - Hypotension [Unknown]
  - Loss of consciousness [Unknown]
  - Heart rate decreased [Unknown]
  - Myocardial infarction [Unknown]
  - Pulmonary arterial pressure increased [Unknown]
  - Neoplasm progression [Unknown]
  - Diabetes mellitus [Unknown]
  - Blood pressure increased [Recovered/Resolved]
  - Musculoskeletal stiffness [Unknown]
  - Muscle spasms [Unknown]
  - Feeling abnormal [Unknown]
  - Blood cholesterol abnormal [Unknown]
  - Incorrect dose administered [Unknown]
  - Drug intolerance [Unknown]
  - Somnolence [Unknown]
  - Peripheral swelling [Unknown]
  - Lymphadenopathy [Unknown]
  - Pallor [Unknown]
  - Breast swelling [Unknown]
  - Pain [Unknown]
  - Abdominal distension [Unknown]
  - Malaise [Unknown]
  - Blood potassium decreased [Unknown]
  - Fatigue [Unknown]
  - Epistaxis [Unknown]
  - Drug ineffective [Unknown]
  - Pruritus [Unknown]
